FAERS Safety Report 7063164-X (Version None)
Quarter: 2010Q4

REPORT INFORMATION
  Report Type: 
  Country: None (occurrence: None)
  Receive Date: 20101026
  Receipt Date: 20100507
  Transmission Date: 20110411
  Serious: Yes (Other)
  Sender: FDA-Public Use
  Company Number: US-PFIZER INC-2010058117

PATIENT
  Sex: Male
  Weight: 97.506 kg

DRUGS (2)
  1. LIPITOR [Suspect]
     Dosage: 20 MG, DAILY
  2. LOTREL [Concomitant]
     Indication: BLOOD PRESSURE
     Dosage: UNK

REACTIONS (1)
  - TENDON RUPTURE [None]
